FAERS Safety Report 19199386 (Version 1)
Quarter: 2021Q2

REPORT INFORMATION
  Report Type: Spontaneous
  Country: US (occurrence: US)
  Receive Date: 20210429
  Receipt Date: 20210429
  Transmission Date: 20210717
  Serious: Yes (Hospitalization)
  Sender: FDA-Public Use
  Company Number: None

PATIENT
  Age: 90 Year
  Sex: Female
  Weight: 55.2 kg

DRUGS (1)
  1. PEGASYS [Suspect]
     Active Substance: PEGINTERFERON ALFA-2A
     Indication: CUTANEOUS T-CELL LYMPHOMA
     Dosage: ?          OTHER FREQUENCY:WEEKLY;?
     Route: 058
     Dates: start: 20210215, end: 20210308

REACTIONS (3)
  - Dermatitis [None]
  - Drug eruption [None]
  - Pemphigoid [None]

NARRATIVE: CASE EVENT DATE: 20210308
